FAERS Safety Report 8487614-7 (Version None)
Quarter: 2012Q3

REPORT INFORMATION
  Report Type: 
  Country: None (occurrence: None)
  Receive Date: 20120705
  Receipt Date: 20120629
  Transmission Date: 20120928
  Serious: Yes (Hospitalization)
  Sender: FDA-Public Use
  Company Number: US-BAYER-2011-070663

PATIENT
  Age: 48 Year
  Sex: Female
  Weight: 86.621 kg

DRUGS (11)
  1. RELPAX [Concomitant]
     Dosage: 40 MG / 30 DAY SUPPLY
     Dates: start: 20060318, end: 20070710
  2. YASMIN [Suspect]
     Indication: CONTRACEPTION
     Dosage: UNK
     Dates: start: 20060201, end: 20060501
  3. ZYRTEC [Concomitant]
     Dosage: 10 MG/ 30 DAY SUPPLY
     Dates: start: 20060503
  4. HYDROCODONE BITARTRATE + ACETAMINOPHEN [Concomitant]
     Dosage: UNK
     Dates: start: 20060215
  5. AZITHROMYCIN [Concomitant]
     Dosage: 2 G/ 60 ML/ 5 DAY SUPPLY
     Dates: start: 20060318
  6. AZITHROMYCIN [Concomitant]
     Dosage: 2 G/ 60 ML/ 5 DAY SUPPLY
     Dates: start: 20060508
  7. H-C TUSSIVE [Concomitant]
     Dosage: 24 DAYS SUPPLY
     Dates: start: 20060509
  8. H-C TUSSIVE [Concomitant]
     Dosage: 24 DAYS SUPPLY
     Dates: start: 20060512
  9. KETEK [Concomitant]
     Dosage: 400 MG/5 DAYS SUPPLY
     Dates: start: 20060512
  10. NASACORT AQ [Concomitant]
     Dosage: UNK
     Route: 045
     Dates: start: 20060503
  11. METHYLPREDNISOLONE [Concomitant]
     Dosage: 4 MG/6 DAY SUPPLY
     Dates: start: 20060512

REACTIONS (4)
  - PAIN [None]
  - FEAR [None]
  - DEEP VEIN THROMBOSIS [None]
  - INJURY [None]
